FAERS Safety Report 7517977-8 (Version None)
Quarter: 2011Q2

REPORT INFORMATION
  Report Type: 
  Country: None (occurrence: None)
  Receive Date: 20110531
  Receipt Date: 20110531
  Transmission Date: 20111010
  Serious: Yes (Other)
  Sender: FDA-Public Use
  Company Number: None

PATIENT
  Age: 52 Year
  Sex: Female
  Weight: 91.173 kg

DRUGS (1)
  1. KENALOG-40 [Suspect]
     Indication: ASTHMA
     Dosage: 40MG/ML ONCE IM
     Route: 030
     Dates: start: 20110519, end: 20110519

REACTIONS (9)
  - URINARY INCONTINENCE [None]
  - VIRAL INFECTION [None]
  - ERYTHEMA [None]
  - FEELING ABNORMAL [None]
  - ABDOMINAL DISTENSION [None]
  - HYPERTENSION [None]
  - ASTHMA [None]
  - CONDITION AGGRAVATED [None]
  - HYPERHIDROSIS [None]
